FAERS Safety Report 6669729-9 (Version None)
Quarter: 2010Q2

REPORT INFORMATION
  Report Type: 
  Country: None (occurrence: None)
  Receive Date: 20100402
  Receipt Date: 20100323
  Transmission Date: 20101027
  Serious: Yes (Other)
  Sender: FDA-Public Use
  Company Number: DE-1180838

PATIENT
  Age: 77 Year
  Sex: Female

DRUGS (2)
  1. AZOPT [Suspect]
     Indication: NORMAL TENSION GLAUCOMA
     Dosage: BID, OPHTHALMIC
     Route: 047
     Dates: start: 20050101
  2. XALATAN [Concomitant]

REACTIONS (1)
  - VISUAL ACUITY REDUCED [None]
